FAERS Safety Report 5236722-2 (Version None)
Quarter: 2007Q1

REPORT INFORMATION
  Report Type: 
  Country: None (occurrence: None)
  Receive Date: 20070209
  Receipt Date: 20070202
  Transmission Date: 20070707
  Serious: Yes (Hospitalization)
  Sender: FDA-Public Use
  Company Number: 2007SP002105

PATIENT
  Age: 72 Year
  Sex: Male

DRUGS (6)
  1. CELESTONE [Suspect]
     Indication: CHRONIC SINUSITIS
     Dosage: 2 DF, QD; PO
     Route: 048
     Dates: start: 20061201, end: 20070119
  2. CALBLOCK [Concomitant]
  3. DIOVAN [Concomitant]
  4. CLARITHROMYCIN [Concomitant]
  5. RIZABEN [Concomitant]
  6. MUCOSTA [Concomitant]

REACTIONS (8)
  - ALANINE AMINOTRANSFERASE INCREASED [None]
  - ASPARTATE AMINOTRANSFERASE INCREASED [None]
  - BLOOD ALKALINE PHOSPHATASE INCREASED [None]
  - BLOOD BILIRUBIN INCREASED [None]
  - GAMMA-GLUTAMYLTRANSFERASE INCREASED [None]
  - HAEMATURIA [None]
  - HEPATIC FUNCTION ABNORMAL [None]
  - PRURITUS [None]
